FAERS Safety Report 4307285-0 (Version None)
Quarter: 2004Q1

REPORT INFORMATION
  Report Type: 
  Country: None (occurrence: None)
  Receive Date: 20040227
  Receipt Date: 20040223
  Transmission Date: 20041129
  Serious: Yes (Other)
  Sender: FDA-Public Use
  Company Number: WAES 0402GBR00231

PATIENT
  Age: 59 Year
  Sex: Male

DRUGS (1)
  1. VIOXX [Suspect]
     Indication: RHEUMATOID ARTHRITIS
     Route: 048
     Dates: start: 20010319, end: 20040126

REACTIONS (2)
  - BLISTER [None]
  - DERMATITIS EXFOLIATIVE [None]
